FAERS Safety Report 23687886 (Version 6)
Quarter: 2024Q3

REPORT INFORMATION
  Report Type: Report from Study
  Country: MX (occurrence: MX)
  Receive Date: 20240329
  Receipt Date: 20240723
  Transmission Date: 20241016
  Serious: Yes (Hospitalization, Other)
  Sender: NOVARTIS
  Company Number: MX-002147023-NVSC2024MX067970

PATIENT
  Sex: Female
  Weight: 61 kg

DRUGS (10)
  1. TASIGNA [Suspect]
     Active Substance: NILOTINIB
     Indication: Chronic myeloid leukaemia
     Dosage: 600 MG, QD (STARTED APPROXIMATELY ONE YEAR AND A HALF AGO)
     Route: 048
  2. TASIGNA [Suspect]
     Active Substance: NILOTINIB
     Dosage: 400 MG (400 MG IN THE MORNING AND 400 MG AT NIGH), BID
     Route: 048
  3. TASIGNA [Suspect]
     Active Substance: NILOTINIB
     Dosage: 1 CAPSULE OF 200 MG IN THE MORNING AND 2 CAPSULES OF 200 MG IN THE AFTERNOON
     Route: 048
  4. TASIGNA [Suspect]
     Active Substance: NILOTINIB
     Dosage: 800 MG, QD (4 X 200 MG)
     Route: 048
     Dates: start: 2022
  5. TASIGNA [Suspect]
     Active Substance: NILOTINIB
     Dosage: 600 MG, QD (1 CAPSULE IN THE MORNING AND 2 CAPSULES AT NIGHT)
     Route: 048
  6. TASIGNA [Suspect]
     Active Substance: NILOTINIB
     Dosage: 600 MG, QD (3 OF 200 MG) (200 MG IN THE MORNING AND 400 MG IN THE NIGHT, STARTED 1 YEARS 5 MONTHS AG
     Route: 048
  7. DEXAMETHASONE [Suspect]
     Active Substance: DEXAMETHASONE
     Indication: Product used for unknown indication
     Dosage: 2 DOSAGE FORM
     Route: 065
  8. OMEPRAZOLE [Concomitant]
     Active Substance: OMEPRAZOLE
     Indication: Gastritis
     Dosage: UNK
     Route: 048
     Dates: start: 2022
  9. SUCRALFATE [Concomitant]
     Active Substance: SUCRALFATE
     Indication: Gastritis
     Dosage: 1 DOSAGE FORM, QD (START DATE: A YEAR AND 4 MONTHS AGO)
     Route: 048
  10. MONTELUKAST [Concomitant]
     Active Substance: MONTELUKAST SODIUM
     Indication: Hypersensitivity
     Dosage: 1 DOSAGE FORM (IN THE MORNING FOR 30 SAYS AND THEN WHEN NEEDED)
     Route: 048

REACTIONS (32)
  - Inflammation [Recovered/Resolved]
  - Depressed mood [Not Recovered/Not Resolved]
  - Discomfort [Not Recovered/Not Resolved]
  - Ill-defined disorder [Unknown]
  - Cyst [Unknown]
  - Abdominal pain upper [Recovered/Resolved]
  - Erectile dysfunction [Unknown]
  - Muscle spasms [Not Recovered/Not Resolved]
  - Dry skin [Recovering/Resolving]
  - Pruritus [Recovering/Resolving]
  - Headache [Recovered/Resolved]
  - Increased appetite [Not Recovered/Not Resolved]
  - Weight increased [Not Recovered/Not Resolved]
  - Pain [Unknown]
  - Cachexia [Unknown]
  - Nausea [Unknown]
  - Arthralgia [Not Recovered/Not Resolved]
  - Spinal disorder [Not Recovered/Not Resolved]
  - Thinking abnormal [Unknown]
  - Hypotension [Unknown]
  - Urticaria [Not Recovered/Not Resolved]
  - Rash [Recovered/Resolved]
  - Dry mouth [Recovering/Resolving]
  - Electric shock sensation [Recovered/Resolved]
  - Thirst [Not Recovered/Not Resolved]
  - Hunger [Not Recovered/Not Resolved]
  - Blood glucose abnormal [Not Recovered/Not Resolved]
  - Blood glucose increased [Recovered/Resolved]
  - Weight decreased [Unknown]
  - Skin atrophy [Recovering/Resolving]
  - Anger [Unknown]
  - Frustration tolerance decreased [Unknown]

NARRATIVE: CASE EVENT DATE: 20220101
